FAERS Safety Report 22262006 (Version 3)
Quarter: 2023Q2

REPORT INFORMATION
  Report Type: Report from Study
  Country: DE (occurrence: DE)
  Receive Date: 20230428
  Receipt Date: 20230515
  Transmission Date: 20230722
  Serious: Yes (Life-Threatening, Other)
  Sender: FDA-Public Use
  Company Number: DE-AMGEN-DEUCT2023072602

PATIENT
  Age: 54 Year
  Sex: Male
  Weight: 84 kg

DRUGS (15)
  1. CARFILZOMIB [Suspect]
     Active Substance: CARFILZOMIB
     Indication: Plasma cell myeloma
     Dosage: 40.8 MILLIGRAM/DAY, PER CHEMO REGIM (20 MG/M2 BSA, CYCLE 1)
     Route: 042
     Dates: start: 20200814, end: 20200829
  2. CARFILZOMIB [Suspect]
     Active Substance: CARFILZOMIB
     Dosage: 73.4 MILLIGRAM/DAY, PER CHEMO REGIM (36 MG/M2 BSA, CYCLE 2-6)
     Route: 042
     Dates: start: 20200910, end: 20210209
  3. CARFILZOMIB [Suspect]
     Active Substance: CARFILZOMIB
     Dosage: 74 MILLIGRAM/DAY, PER CHEMO REGIM (36 MG/M2 BSA, CYCLE 1)
     Route: 042
     Dates: start: 20210607
  4. LENALIDOMIDE [Suspect]
     Active Substance: LENALIDOMIDE
     Indication: Plasma cell myeloma
     Dosage: 25 MILLIGRAM/DAY, PER CHEMO REGIM (25 MILLIGRAMS, CYCLICAL)
     Route: 048
     Dates: start: 20200814, end: 20210214
  5. LENALIDOMIDE [Suspect]
     Active Substance: LENALIDOMIDE
     Dosage: 15 MILLIGRAM/DAY, PER CHEMO REGIM (15 MILLIGRAMS, CYCLICAL)
     Route: 048
     Dates: start: 20210607, end: 20210628
  6. LENALIDOMIDE [Suspect]
     Active Substance: LENALIDOMIDE
     Dosage: 25 MILLIGRAM/DAY, PER CHEMO REGIM (25 MILLIGRAMS, CYCLICAL)
     Route: 048
     Dates: start: 20210705, end: 20210920
  7. LENALIDOMIDE [Suspect]
     Active Substance: LENALIDOMIDE
     Dosage: 10 MILLIGRAM/DAY, PER CHEMO REGIM  (10 MILLIGRAMS, D1 -D28 OF CYCLE 1-4)
     Route: 048
     Dates: start: 20211011, end: 20220220
  8. LENALIDOMIDE [Suspect]
     Active Substance: LENALIDOMIDE
     Dosage: 15 MILLIGRAM/DAY, PER CHEMO REGIM (15 MILLIGRAMS, D1 -D28 OF CYCLE 5-13)
     Route: 048
     Dates: start: 20220221, end: 20221105
  9. LENALIDOMIDE [Suspect]
     Active Substance: LENALIDOMIDE
     Dosage: 10 MILLIGRAM/DAY, PER CHEMO REGIM Y (10 MILLIGRAMS, D1 -D28 OF CYCLE 14-15)
     Route: 048
     Dates: start: 20221107, end: 20230108
  10. LENALIDOMIDE [Suspect]
     Active Substance: LENALIDOMIDE
     Dosage: 15 MILLIGRAM/DAY, PER CHEMO REGIM Y (15 MILLIGRAMS, D1 -D28 OF CYCLE 16)
     Route: 048
     Dates: start: 20230116, end: 20230212
  11. LENALIDOMIDE [Suspect]
     Active Substance: LENALIDOMIDE
     Dosage: 10 MILLIGRAM, PER CHEMO REGIM (10 MILLIGRAMS, D1 -D28 OF CYCLE 17-18)
     Route: 048
     Dates: start: 20230213
  12. DEXAMETHASONE [Suspect]
     Active Substance: DEXAMETHASONE
     Indication: Plasma cell myeloma
     Dosage: 40 MILLIGRAM/DAY, PER CHEMO REGIM  (40 MILLIGRAMS, CYCLICAL)
     Route: 048
     Dates: start: 20200814, end: 20210215
  13. DEXAMETHASONE [Suspect]
     Active Substance: DEXAMETHASONE
     Dosage: 20 MILLIGRAM/DAY, PER CHEMO REGIM  (20 MILLIGRAMS, D8+D22)
     Route: 048
     Dates: start: 20210607
  14. COTRIM [Concomitant]
     Active Substance: SULFAMETHOXAZOLE\TRIMETHOPRIM
     Indication: Antifungal prophylaxis
     Dosage: 960 MILLIGRAM, Q3WK
     Route: 048
     Dates: start: 20200813
  15. ACYCLOVIR [Concomitant]
     Active Substance: ACYCLOVIR
     Indication: Antiviral prophylaxis
     Dosage: 400 MILLIGRAM, BID
     Dates: start: 20210815

REACTIONS (1)
  - Acute myeloid leukaemia [Not Recovered/Not Resolved]

NARRATIVE: CASE EVENT DATE: 20230419
